FAERS Safety Report 23882816 (Version 1)
Quarter: 2024Q2

REPORT INFORMATION
  Report Type: Spontaneous
  Country: CA (occurrence: CA)
  Receive Date: 20240522
  Receipt Date: 20240522
  Transmission Date: 20240716
  Serious: Yes (Hospitalization, Other)
  Sender: FDA-Public Use
  Company Number: CA-AstraZeneca-2023A212125

PATIENT
  Age: 43 Year
  Sex: Male

DRUGS (16)
  1. QUETIAPINE [Suspect]
     Active Substance: QUETIAPINE
     Indication: Depression
  2. QUETIAPINE [Suspect]
     Active Substance: QUETIAPINE
     Indication: Bipolar disorder
  3. CLONAZEPAM [Suspect]
     Active Substance: CLONAZEPAM
     Indication: Depression
  4. CLONAZEPAM [Suspect]
     Active Substance: CLONAZEPAM
     Indication: Bipolar disorder
  5. BENZTROPINE [Suspect]
     Active Substance: BENZTROPINE
     Indication: Bipolar disorder
  6. BENZTROPINE [Suspect]
     Active Substance: BENZTROPINE
     Indication: Depression
  7. BREXPIPRAZOLE [Suspect]
     Active Substance: BREXPIPRAZOLE
     Indication: Bipolar disorder
  8. BREXPIPRAZOLE [Suspect]
     Active Substance: BREXPIPRAZOLE
     Indication: Depression
  9. KETAMINE [Suspect]
     Active Substance: KETAMINE
     Indication: Bipolar disorder
     Route: 042
  10. KETAMINE [Suspect]
     Active Substance: KETAMINE
     Indication: Bipolar disorder
  11. LEVOMILNACIPRAN [Suspect]
     Active Substance: LEVOMILNACIPRAN
     Indication: Depression
  12. LEVOMILNACIPRAN [Suspect]
     Active Substance: LEVOMILNACIPRAN
     Indication: Bipolar disorder
  13. VORTIOXETINE [Suspect]
     Active Substance: VORTIOXETINE
     Indication: Bipolar disorder
  14. VORTIOXETINE [Suspect]
     Active Substance: VORTIOXETINE
     Indication: Depression
  15. ZOPICLONE [Suspect]
     Active Substance: ZOPICLONE
     Indication: Depression
  16. ZOPICLONE [Suspect]
     Active Substance: ZOPICLONE
     Indication: Bipolar disorder

REACTIONS (3)
  - Dissociation [Unknown]
  - Drug ineffective [Unknown]
  - Off label use [Unknown]
